FAERS Safety Report 6046362-3 (Version None)
Quarter: 2009Q1

REPORT INFORMATION
  Report Type: 
  Country: None (occurrence: None)
  Receive Date: 20090122
  Receipt Date: 20090116
  Transmission Date: 20090719
  Serious: Yes (Hospitalization)
  Sender: FDA-Public Use
  Company Number: US-ASTRAZENECA-2009UW01536

PATIENT
  Age: 70 Year
  Sex: Female

DRUGS (3)
  1. ARIMIDEX [Suspect]
     Route: 048
     Dates: start: 20050201
  2. TOPROL-XL [Suspect]
     Route: 048
  3. CRESTOR [Concomitant]
     Route: 048
     Dates: start: 20080101

REACTIONS (2)
  - FALL [None]
  - HIP FRACTURE [None]
